FAERS Safety Report 23296370 (Version 1)
Quarter: 2023Q4

REPORT INFORMATION
  Report Type: Spontaneous
  Country: IN (occurrence: IN)
  Receive Date: 20231214
  Receipt Date: 20231214
  Transmission Date: 20240110
  Serious: Yes (Other)
  Sender: FDA-Public Use
  Company Number: IN-009507513-2312IND002317

PATIENT
  Age: 62 Year
  Sex: Male

DRUGS (2)
  1. CASPOFUNGIN ACETATE [Suspect]
     Active Substance: CASPOFUNGIN ACETATE
     Indication: Candida infection
     Dosage: INJECTIONS
  2. COLISTIN [Concomitant]
     Active Substance: COLISTIN

REACTIONS (1)
  - Drug ineffective [Unknown]
